FAERS Safety Report 8596677-X (Version None)
Quarter: 2012Q3

REPORT INFORMATION
  Report Type: 
  Country: None (occurrence: None)
  Receive Date: 20120815
  Receipt Date: 20120808
  Transmission Date: 20120928
  Serious: Yes (Other)
  Sender: FDA-Public Use
  Company Number: JP-ROCHE-1082917

PATIENT
  Sex: Male

DRUGS (13)
  1. OXALIPLATIN [Suspect]
     Indication: COLON CANCER METASTATIC
     Route: 041
     Dates: start: 20100428, end: 20100709
  2. OXALIPLATIN [Suspect]
     Route: 041
     Dates: start: 20100806, end: 20100806
  3. AMLODIPINE [Concomitant]
     Route: 048
  4. TANATRIL [Concomitant]
     Route: 048
  5. OXALIPLATIN [Suspect]
     Route: 041
     Dates: start: 20100827, end: 20101008
  6. XELODA [Suspect]
     Indication: COLON CANCER METASTATIC
     Dosage: DOSE REDUCED
     Route: 048
     Dates: start: 20100428, end: 20100701
  7. XELODA [Suspect]
     Route: 048
     Dates: start: 20100806, end: 20101001
  8. KYTRIL [Concomitant]
     Indication: PROPHYLAXIS OF NAUSEA AND VOMITING
     Route: 041
     Dates: start: 20100428
  9. AVASTIN [Suspect]
     Indication: COLON CANCER METASTATIC
     Route: 041
     Dates: start: 20100428, end: 20101008
  10. AVASTIN [Suspect]
     Route: 041
     Dates: end: 20110812
  11. KYTRIL [Concomitant]
     Route: 048
     Dates: start: 20100429, end: 20101011
  12. PROMAC [Concomitant]
     Route: 048
     Dates: start: 20100709
  13. DECADRON PHOSPHATE [Concomitant]
     Indication: PROPHYLAXIS OF NAUSEA AND VOMITING
     Dates: start: 20100428, end: 20101008

REACTIONS (2)
  - HEPATIC FUNCTION ABNORMAL [None]
  - PLATELET COUNT DECREASED [None]
